FAERS Safety Report 14744837 (Version 2)
Quarter: 2018Q3

REPORT INFORMATION
  Report Type: Spontaneous
  Country: US (occurrence: US)
  Receive Date: 20180411
  Receipt Date: 20180712
  Transmission Date: 20181010
  Serious: No
  Sender: FDA-Public Use
  Company Number: US-WEST-WARD PHARMACEUTICALS CORP.-US-H14001-18-01468

PATIENT

DRUGS (1)
  1. NEOSTIGMINE METHYLSULFATE. [Suspect]
     Active Substance: NEOSTIGMINE METHYLSULFATE
     Indication: PRODUCT USED FOR UNKNOWN INDICATION
     Route: 058

REACTIONS (1)
  - Drug prescribing error [Recovered/Resolved]

NARRATIVE: CASE EVENT DATE: 20180220
